FAERS Safety Report 7275221-3 (Version None)
Quarter: 2011Q1

REPORT INFORMATION
  Report Type: 
  Country: None (occurrence: None)
  Receive Date: 20110204
  Receipt Date: 20110131
  Transmission Date: 20110831
  Serious: Yes (Death)
  Sender: FDA-Public Use
  Company Number: PHHY2010CA71840

PATIENT
  Sex: Female

DRUGS (6)
  1. DIOVAN HCT [Concomitant]
     Dosage: UNK
     Dates: start: 20100127
  2. NORVASC [Concomitant]
     Dosage: UNK
     Dates: start: 20100127
  3. CATAPRES [Concomitant]
     Dosage: UNK
     Dates: start: 20100127
  4. ACLASTA/ZOLEDRONATE [Suspect]
     Indication: OSTEOPOROSIS
     Dosage: 5 MG/ 100 ML
     Route: 042
     Dates: start: 20091110
  5. NEXIUM [Concomitant]
     Dosage: UNK
     Dates: start: 20100127
  6. RASILEZ [Concomitant]
     Dosage: UNK
     Dates: start: 20100127

REACTIONS (1)
  - THROMBOSIS MESENTERIC VESSEL [None]
